FAERS Safety Report 14152917 (Version 19)
Quarter: 2020Q2

REPORT INFORMATION
  Report Type: Spontaneous
  Country: FR (occurrence: FR)
  Receive Date: 20171102
  Receipt Date: 20200623
  Transmission Date: 20200713
  Serious: Yes (Hospitalization, Other)
  Sender: FDA-Public Use
  Company Number: FR-PFIZER INC-2017466302

PATIENT
  Age: 100 Year
  Sex: Female
  Weight: 73 kg

DRUGS (26)
  1. ATENOLOL. [Suspect]
     Active Substance: ATENOLOL
     Dosage: 10 MG, SINGLE
     Route: 048
     Dates: start: 20170628, end: 20170628
  2. NOVONORM [Suspect]
     Active Substance: REPAGLINIDE
     Dosage: 1.0MG ONCE/SINGLE ADMINISTRATION
     Route: 048
     Dates: start: 20170628, end: 20170628
  3. PARACETAMOL [Concomitant]
     Active Substance: ACETAMINOPHEN
     Dosage: 2 DF, 1X/DAY
     Route: 065
  4. PARACETAMOL [Concomitant]
     Active Substance: ACETAMINOPHEN
     Dosage: 1 DF, 1X/DAY
     Route: 065
  5. SKENAN [Concomitant]
     Active Substance: MORPHINE SULFATE
     Dosage: 1 UNK
     Route: 065
  6. FORLAX [Concomitant]
     Active Substance: POLYETHYLENE GLYCOL 4000
     Dosage: 1 DF, 1X/DAY
     Route: 065
  7. ALDACTONE [Concomitant]
     Active Substance: SPIRONOLACTONE
     Dosage: 2 DF, 1X/DAY
     Route: 065
  8. AMLOR [Suspect]
     Active Substance: AMLODIPINE BESYLATE
     Dosage: 10.0MG ONCE/SINGLE ADMINISTRATION
     Route: 048
     Dates: start: 20170628, end: 20170628
  9. ADANCOR [Suspect]
     Active Substance: NICORANDIL
     Dosage: 10.0MG ONCE/SINGLE ADMINISTRATION
     Route: 048
     Dates: start: 20170628, end: 20170628
  10. PARACETAMOL [Concomitant]
     Active Substance: ACETAMINOPHEN
     Dosage: 1 DF, 1X/DAY
     Route: 065
  11. SKENAN [Concomitant]
     Active Substance: MORPHINE SULFATE
     Dosage: 1 DF, 1X/DAY (EVENING)
     Route: 065
  12. LASILIX FAIBLE [Concomitant]
     Active Substance: FUROSEMIDE
     Dosage: 6 DF, 1X/DAY
     Route: 065
  13. LASILIX FAIBLE [Concomitant]
     Active Substance: FUROSEMIDE
     Dosage: 3 DF, 1X/DAY
     Route: 065
  14. CARDENSIEL [Concomitant]
     Active Substance: BISOPROLOL FUMARATE
     Dosage: 1 DF, 1X/DAY (MORNING)
     Route: 065
  15. LEVOTHYROX [Concomitant]
     Active Substance: LEVOTHYROXINE
     Dosage: 1 DF, 1X/DAY (MORNING)
     Route: 065
     Dates: start: 20080101
  16. ESIDREX [Suspect]
     Active Substance: HYDROCHLOROTHIAZIDE
     Dosage: 25.0MG ONCE/SINGLE ADMINISTRATION
     Route: 048
     Dates: start: 20170628, end: 20170628
  17. ALDACTONE [Concomitant]
     Active Substance: SPIRONOLACTONE
     Dosage: 1 DF, 2X/DAY
     Route: 065
  18. ALDACTONE [Concomitant]
     Active Substance: SPIRONOLACTONE
     Dosage: 1 DF, 1X/DAY
     Route: 065
  19. DUROGESIC [Concomitant]
     Active Substance: FENTANYL
     Dosage: 1 PATCH PER 72 HOURS
     Route: 065
  20. AMIODARONE HCL [Suspect]
     Active Substance: AMIODARONE HYDROCHLORIDE
     Indication: ATRIAL FIBRILLATION
     Dosage: 200 MG, 1X/DAY (MORNING)
     Route: 048
     Dates: start: 20170628
  21. SPIRONOLACTONE. [Suspect]
     Active Substance: SPIRONOLACTONE
     Dosage: 1 DF, SINGLE
     Route: 048
     Dates: start: 20170628, end: 20170628
  22. PERINDOPRIL [Suspect]
     Active Substance: PERINDOPRIL
     Dosage: 8.0MG ONCE/SINGLE ADMINISTRATION
     Route: 048
     Dates: start: 20170628, end: 20170628
  23. FORLAX [Concomitant]
     Active Substance: POLYETHYLENE GLYCOL 4000
     Dosage: 1 DF, 1X/DAY (MORNING)
     Route: 065
  24. XANAX [Concomitant]
     Active Substance: ALPRAZOLAM
     Dosage: 1 MORNING, 1 NOON, 2 EVENING
     Route: 065
     Dates: start: 20170628
  25. NAFTIDROFURYL [Concomitant]
     Active Substance: NAFRONYL
     Dosage: 200 MG, UNK
     Route: 065
     Dates: start: 20170628
  26. FENTANYL. [Concomitant]
     Active Substance: FENTANYL
     Dosage: UNK,Q3D (1 PATCH PER 72 HOURS)
     Route: 065

REACTIONS (6)
  - Hypotension [Recovered/Resolved]
  - Bradycardia [Recovered/Resolved]
  - Hypoglycaemia [Recovered/Resolved]
  - Coma scale abnormal [Unknown]
  - Wrong patient received product [Unknown]
  - Acute kidney injury [Recovered/Resolved]

NARRATIVE: CASE EVENT DATE: 20170628
